FAERS Safety Report 16427013 (Version 1)
Quarter: 2019Q2

REPORT INFORMATION
  Report Type: Spontaneous
  Country: AU (occurrence: AU)
  Receive Date: 20190613
  Receipt Date: 20190613
  Transmission Date: 20190711
  Serious: Yes (Other)
  Sender: FDA-Public Use
  Company Number: AU-009507513-1906AUS002554

PATIENT
  Age: 49 Year
  Sex: Female

DRUGS (4)
  1. ELOCON [Suspect]
     Active Substance: MOMETASONE FUROATE
     Dosage: UNK
  2. HYDROCORTISONE. [Suspect]
     Active Substance: HYDROCORTISONE
     Dosage: UNK
  3. NOVASONE [Suspect]
     Active Substance: MOMETASONE FUROATE
     Dosage: UNK
  4. BETNOVATE [Suspect]
     Active Substance: BETAMETHASONE
     Dosage: UNK

REACTIONS (7)
  - Steroid withdrawal syndrome [Recovering/Resolving]
  - Depression [Unknown]
  - Oedema [Recovering/Resolving]
  - Anxiety [Unknown]
  - Alopecia [Recovering/Resolving]
  - Insomnia [Recovering/Resolving]
  - Photophobia [Recovered/Resolved]

NARRATIVE: CASE EVENT DATE: 20140201
